FAERS Safety Report 21423220 (Version 1)
Quarter: 2022Q4

REPORT INFORMATION
  Report Type: Spontaneous
  Country: IT (occurrence: IT)
  Receive Date: 20221007
  Receipt Date: 20221007
  Transmission Date: 20230113
  Serious: Yes (Other)
  Sender: FDA-Public Use
  Company Number: IT-ROCHE-3125799

PATIENT
  Age: 63 Year
  Sex: Female
  Weight: 110 kg

DRUGS (19)
  1. PACLITAXEL [Suspect]
     Active Substance: PACLITAXEL
     Indication: HER2 positive breast cancer
     Dosage: MOST RECENT DOSE PRIOR TO THE EVENT: 24/SEP/2020?ROA-20045000
     Route: 042
     Dates: start: 20170303, end: 20170413
  2. ANASTROZOLE [Suspect]
     Active Substance: ANASTROZOLE
     Indication: HER2 positive breast cancer
     Dosage: MOST RECENT DOSE OF ANASTROZOLE: 12/JUN/2019?ROA-20053000
     Route: 048
     Dates: start: 20170918
  3. LAPATINIB [Suspect]
     Active Substance: LAPATINIB
     Indication: HER2 positive breast cancer
     Dosage: MOST RECENT DOSE OF LAPATINIB: 19/JUN/2020?ROA-20053000
     Route: 048
     Dates: start: 20191209
  4. CAPECITABINE [Suspect]
     Active Substance: CAPECITABINE
     Indication: HER2 positive breast cancer
     Dosage: MOST RECENT DOSE OF CAPECITABINE PRIOR TO THE EVENT: 18/JUN/2020?PDF-10219000?ROA-20053000
     Route: 048
     Dates: start: 20191209, end: 20191230
  5. TRASTUZUMAB [Suspect]
     Active Substance: TRASTUZUMAB
     Indication: HER2 positive breast cancer
     Dosage: MOST RECENT DOSE PRIOR TO THE EVENT: 20/JUN/2017?PDF-11210000?ROA-20045000
     Route: 042
     Dates: start: 20170303, end: 20170303
  6. ADO-TRASTUZUMAB EMTANSINE [Suspect]
     Active Substance: ADO-TRASTUZUMAB EMTANSINE
     Indication: HER2 positive breast cancer
     Dosage: MOST RECENT DOSE OF TRASTUZUMAB EMTANSINE PRIOR TO THE EVENT: 04/SEP/2019?PDF-11210000?ROA-20045000
     Route: 042
     Dates: start: 20190612, end: 20190703
  7. PERTUZUMAB [Suspect]
     Active Substance: PERTUZUMAB
     Indication: HER2 positive breast cancer
     Dosage: MOST RECENT DOSE PRIOR TO THE EVENT: 20/JUN/2017?PDF-11210000?ROA-20045000
     Route: 042
     Dates: start: 20170303, end: 20170303
  8. ZOLEDRONIC ACID [Concomitant]
     Active Substance: ZOLEDRONIC ACID
     Indication: Product used for unknown indication
     Dosage: ONGOING = CHECKED
     Route: 042
     Dates: start: 20200120
  9. ZOLEDRONIC ACID [Concomitant]
     Active Substance: ZOLEDRONIC ACID
     Dosage: ONGOING = CHECKED
     Route: 042
     Dates: start: 20170215
  10. CHOLECALCIFEROL [Concomitant]
     Active Substance: CHOLECALCIFEROL
     Indication: Vitamin D deficiency
     Dosage: ONGOING = CHECKED
     Route: 065
     Dates: start: 20180320
  11. CITALOPRAM [Concomitant]
     Active Substance: CITALOPRAM HYDROBROMIDE
     Indication: Product used for unknown indication
     Dosage: ONGOING = CHECKED
     Route: 065
  12. COVID-19 vaccine [Concomitant]
     Indication: Product used for unknown indication
     Dosage: ONGOING = NOT CHECKED
     Route: 065
     Dates: start: 20210419, end: 20210419
  13. COVID-19 vaccine [Concomitant]
     Dosage: ONGOING = NOT CHECKED
     Route: 065
     Dates: start: 20210329, end: 20210329
  14. CALCIUM CARBONATE\CHOLECALCIFEROL [Concomitant]
     Active Substance: CALCIUM CARBONATE\CHOLECALCIFEROL
     Indication: Vitamin D deficiency
     Dosage: ONGOING = CHECKED
     Route: 065
     Dates: start: 20180320
  15. DEXAMETHASONE [Concomitant]
     Active Substance: DEXAMETHASONE
     Indication: Product used for unknown indication
     Dosage: ONGOING = CHECKED
     Route: 065
     Dates: start: 20200924
  16. TORSEMIDE [Concomitant]
     Active Substance: TORSEMIDE
     Indication: Hypertensive crisis
     Dosage: ONGOING = CHECKED
     Route: 065
     Dates: start: 20180313
  17. OMEPRAZOLE [Concomitant]
     Active Substance: OMEPRAZOLE
     Indication: Product used for unknown indication
     Dosage: ONGOING = CHECKED
     Route: 065
     Dates: start: 20191209
  18. CIMETIDINE [Concomitant]
     Active Substance: CIMETIDINE
     Indication: Product used for unknown indication
     Dosage: ONGOING = CHECKED
     Route: 065
     Dates: start: 20200924, end: 20210610
  19. LOSARTAN [Concomitant]
     Active Substance: LOSARTAN
     Indication: Hypertensive crisis
     Dosage: ONGOING = CHECKED
     Route: 065
     Dates: start: 20180313

REACTIONS (1)
  - Bone marrow infiltration [Not Recovered/Not Resolved]

NARRATIVE: CASE EVENT DATE: 20210422
